FAERS Safety Report 9220302 (Version 2)
Quarter: 2013Q2

REPORT INFORMATION
  Report Type: Spontaneous
  Country: US (occurrence: US)
  Receive Date: 20130409
  Receipt Date: 20130508
  Transmission Date: 20140414
  Serious: Yes (Other)
  Sender: FDA-Public Use
  Company Number: CHPA2013US005848

PATIENT
  Age: 48 Year
  Sex: Female

DRUGS (1)
  1. EXCEDRIN MIGRAINE [Suspect]
     Indication: MIGRAINE
     Dosage: 2-3 CAPLETS, QD
     Route: 048
     Dates: start: 2009

REACTIONS (4)
  - CSF volume increased [Recovered/Resolved]
  - Drug ineffective [Unknown]
  - Overdose [Unknown]
  - Incorrect drug administration duration [Unknown]
